FAERS Safety Report 24456553 (Version 2)
Quarter: 2024Q4

REPORT INFORMATION
  Report Type: Report from Study
  Country: US (occurrence: US)
  Receive Date: 20241017
  Receipt Date: 20241018
  Transmission Date: 20250114
  Serious: No
  Sender: ROCHE
  Company Number: US-ROCHE-3510003

PATIENT
  Age: 66 Year
  Sex: Female
  Weight: 69.3 kg

DRUGS (1)
  1. RITUXAN [Suspect]
     Active Substance: RITUXIMAB
     Indication: Immune system disorder
     Dosage: 2 WEEKS REPEAT EVERY 6 MONTHS? FREQUENCY TEXT:2 WEEKS REPEAT EVERY 6 MONTHS
     Route: 065

REACTIONS (5)
  - Ill-defined disorder [Unknown]
  - Arthralgia [Unknown]
  - Joint swelling [Unknown]
  - Hand deformity [Unknown]
  - Musculoskeletal stiffness [Unknown]
